FAERS Safety Report 25893414 (Version 1)
Quarter: 2025Q4

REPORT INFORMATION
  Report Type: Spontaneous
  Country: GB (occurrence: GB)
  Receive Date: 20251008
  Receipt Date: 20251008
  Transmission Date: 20260117
  Serious: Yes (Other)
  Sender: EMD SERONO INC
  Company Number: None

PATIENT
  Sex: Male

DRUGS (1)
  1. SAIZEN [Suspect]
     Active Substance: SOMATROPIN
     Indication: Product used for unknown indication
     Dosage: 1.0MG OD

REACTIONS (1)
  - Headache [Unknown]
